FAERS Safety Report 4389115-4 (Version None)
Quarter: 2004Q2

REPORT INFORMATION
  Report Type: 
  Country: None (occurrence: None)
  Receive Date: 20040628
  Receipt Date: 20040616
  Transmission Date: 20050107
  Serious: Yes (Other)
  Sender: FDA-Public Use
  Company Number: 206929

PATIENT
  Age: 61 Year
  Sex: Male
  Weight: 101.4 kg

DRUGS (7)
  1. BEVACIZUMAB (BEVACIZUMAB) PWDR + SOLVENT, INFUSION SOLN, 100MG [Suspect]
     Indication: COLORECTAL CANCER METASTATIC
     Dosage: 5 MG/KG, Q2W, INTRAVENOUS
     Route: 042
     Dates: start: 20040331, end: 20040505
  2. OXALIPLATIN (OXALIPLATIN) [Concomitant]
  3. LEUCOVORIN CALCIUM [Concomitant]
  4. FLUOROURACIL [Concomitant]
  5. MULTI-VITAMINS [Concomitant]
  6. FLUTICASONE PROPIONATE [Concomitant]
  7. VALSARTAN (VALSARTAN) [Concomitant]

REACTIONS (3)
  - METASTASES TO PERITONEUM [None]
  - PULMONARY ARTERY THROMBOSIS [None]
  - PULMONARY EMBOLISM [None]
